FAERS Safety Report 10456957 (Version 2)
Quarter: 2014Q3

REPORT INFORMATION
  Report Type: Spontaneous
  Country: SA (occurrence: None)
  Receive Date: 20140912
  Receipt Date: 20140919
  Transmission Date: 20150326
  Serious: Yes (Other)
  Sender: FDA-Public Use
  Company Number: FK201403629

PATIENT
  Age: 27 Year
  Sex: Male

DRUGS (1)
  1. PROPOFOL. [Suspect]
     Active Substance: PROPOFOL
     Indication: SEDATION
     Route: 040

REACTIONS (5)
  - Abnormal behaviour [None]
  - Incoherent [None]
  - Disorientation [None]
  - Euphoric mood [None]
  - Logorrhoea [None]
